FAERS Safety Report 6425776-3 (Version None)
Quarter: 2009Q4

REPORT INFORMATION
  Report Type: 
  Country: None (occurrence: None)
  Receive Date: 20091103
  Receipt Date: 20091028
  Transmission Date: 20100525
  Serious: Yes (Hospitalization)
  Sender: FDA-Public Use
  Company Number: US-MERCK-0910USA02124

PATIENT
  Age: 53 Year
  Sex: Female

DRUGS (4)
  1. ZETIA [Suspect]
     Indication: BLOOD CHOLESTEROL INCREASED
     Route: 048
     Dates: start: 20070901
  2. ZETIA [Suspect]
     Route: 048
     Dates: start: 20080301
  3. WARFARIN [Concomitant]
     Route: 065
     Dates: start: 20080101
  4. CRESTOR [Suspect]
     Route: 065
     Dates: start: 20080301

REACTIONS (2)
  - DRUG INEFFECTIVE [None]
  - THROMBOSIS [None]
